FAERS Safety Report 11459861 (Version 1)
Quarter: 2015Q3

REPORT INFORMATION
  Report Type: Report from Study
  Country: JP (occurrence: JP)
  Receive Date: 20150904
  Receipt Date: 20150904
  Transmission Date: 20151125
  Serious: Yes (Hospitalization, Other)
  Sender: FDA-Public Use
  Company Number: JP-AMGEN-JPNCT2015091388

PATIENT
  Age: 3 Year
  Sex: Female
  Weight: 13 kg

DRUGS (16)
  1. KEFRAL [Concomitant]
     Active Substance: CEFACLOR
     Indication: DEVICE RELATED INFECTION
     Dosage: UNK
     Route: 048
  2. WASSER V [Concomitant]
     Indication: HYPOVITAMINOSIS
     Dosage: UNK
     Route: 048
  3. PICOSULFATE NA [Concomitant]
     Indication: CONSTIPATION
     Dosage: UNK
     Route: 048
  4. AMLODIPINE [Concomitant]
     Active Substance: AMLODIPINE BESYLATE
     Indication: HYPERTENSION
     Dosage: UNK
     Route: 048
  5. LONGES [Concomitant]
     Active Substance: LISINOPRIL
     Indication: CHRONIC KIDNEY DISEASE
     Dosage: UNK
  6. DARBEPOETIN ALFA - KHK [Suspect]
     Active Substance: DARBEPOETIN ALFA
     Indication: PRODUCT USED FOR UNKNOWN INDICATION
     Dosage: 60 MUG, Q2WK
     Route: 058
     Dates: start: 20130926
  7. K.C.L. [Concomitant]
     Indication: HYPOKALAEMIA
     Dosage: UNK
     Route: 048
  8. SODIUM BICARBONATE. [Concomitant]
     Active Substance: SODIUM BICARBONATE
     Indication: CHRONIC KIDNEY DISEASE
     Dosage: UNK
     Route: 048
  9. BACTROBAN                          /00753901/ [Concomitant]
     Indication: DEVICE RELATED INFECTION
     Dosage: UNK
     Route: 062
  10. ALFAROL [Concomitant]
     Active Substance: ALFACALCIDOL
     Indication: CHRONIC KIDNEY DISEASE
     Dosage: UNK
     Route: 048
  11. GENOTROPIN [Concomitant]
     Active Substance: SOMATROPIN
     Indication: DWARFISM
     Dosage: UNK
     Route: 065
  12. INCREMIN                           /00023544/ [Concomitant]
     Indication: CHRONIC KIDNEY DISEASE
     Dosage: UNK
     Route: 048
  13. THYRADIN-S [Concomitant]
     Active Substance: LEVOTHYROXINE
     Indication: HYPOTHYROIDISM
     Dosage: UNK
     Route: 048
  14. RENAGEL [Concomitant]
     Active Substance: SEVELAMER HYDROCHLORIDE
     Indication: ELECTROLYTE IMBALANCE
     Dosage: UNK
     Route: 048
  15. INFLUENZA HA VACCINE [Concomitant]
     Active Substance: INFLUENZA VIRUS VACCINE
     Dosage: UNK
     Route: 058
  16. ANGINAL                            /00042901/ [Concomitant]
     Indication: THROMBOCYTOSIS
     Dosage: UNK
     Route: 048

REACTIONS (9)
  - Bronchitis [Recovered/Resolved]
  - Product contamination [Recovered/Resolved]
  - Device related infection [Recovered/Resolved]
  - Inguinal hernia [Recovered/Resolved]
  - Nasopharyngitis [Recovered/Resolved]
  - Urticaria [Recovered/Resolved]
  - Eczema asteatotic [Recovered/Resolved]
  - Device related infection [Recovered/Resolved]
  - Bronchitis [Recovered/Resolved]

NARRATIVE: CASE EVENT DATE: 20131101
